FAERS Safety Report 20256850 (Version 5)
Quarter: 2022Q1

REPORT INFORMATION
  Report Type: Spontaneous
  Country: US (occurrence: US)
  Receive Date: 20211230
  Receipt Date: 20220224
  Transmission Date: 20220423
  Serious: Yes (Hospitalization)
  Sender: FDA-Public Use
  Company Number: US-KARYOPHARM-2021KPT001625

PATIENT

DRUGS (10)
  1. XPOVIO [Suspect]
     Active Substance: SELINEXOR
     Indication: Plasma cell myeloma
     Dosage: 80 MG, WEEKLY FOR 3 WEEKS ON A 4 WEEK SCHEDULE
     Route: 048
     Dates: start: 20211022
  2. OLANZAPINE [Concomitant]
     Active Substance: OLANZAPINE
     Dosage: 10 MG
  3. DEXAMETHASONE [Concomitant]
     Active Substance: DEXAMETHASONE
     Dosage: 1 MG
  4. ALBUTEROL [Concomitant]
     Active Substance: ALBUTEROL
  5. MECLIZINE HYDROCHLORIDE [Concomitant]
     Active Substance: MECLIZINE HYDROCHLORIDE
     Dosage: 25 MG
  6. TESSALON [Concomitant]
     Active Substance: BENZONATATE
     Dosage: 100 MG
  7. GABAPENTIN [Concomitant]
     Active Substance: GABAPENTIN
     Dosage: 300 MG
  8. NEXIUM [Concomitant]
     Active Substance: ESOMEPRAZOLE MAGNESIUM
     Dosage: 20 MG
  9. NOVOLOG [Concomitant]
     Active Substance: INSULIN ASPART
     Dosage: UNK
  10. KETOPROFEN [Concomitant]
     Active Substance: KETOPROFEN
     Dosage: 25 MG

REACTIONS (3)
  - Pain [Unknown]
  - Dizziness [Recovering/Resolving]
  - Fatigue [Recovering/Resolving]

NARRATIVE: CASE EVENT DATE: 20211201
